FAERS Safety Report 20493552 (Version 2)
Quarter: 2023Q4

REPORT INFORMATION
  Report Type: Report from Study
  Country: US (occurrence: US)
  Receive Date: 20220221
  Receipt Date: 20231117
  Transmission Date: 20240110
  Serious: Yes (Other)
  Sender: FDA-Public Use
  Company Number: US-Merck Healthcare KGaA-9300476

PATIENT
  Age: 63 Year
  Sex: Male

DRUGS (2)
  1. REBIF [Suspect]
     Active Substance: INTERFERON BETA-1A
     Indication: Multiple sclerosis
     Route: 058
     Dates: start: 20151005
  2. REBIF [Suspect]
     Active Substance: INTERFERON BETA-1A

REACTIONS (4)
  - Syncope [Unknown]
  - Aortic aneurysm [Unknown]
  - Peripheral artery occlusion [Unknown]
  - Asthenia [Unknown]

NARRATIVE: CASE EVENT DATE: 20210101
